FAERS Safety Report 6948700-3 (Version None)
Quarter: 2010Q3

REPORT INFORMATION
  Report Type: 
  Country: None (occurrence: None)
  Receive Date: 20100828
  Receipt Date: 20091106
  Transmission Date: 20110219
  Serious: No
  Sender: FDA-Public Use
  Company Number: US-ABBOTT-09P-163-0607867-00

PATIENT
  Sex: Male
  Weight: 128.48 kg

DRUGS (6)
  1. NIASPAN [Suspect]
     Indication: BLOOD CHOLESTEROL INCREASED
     Dates: start: 20090902, end: 20090915
  2. NIASPAN [Suspect]
     Indication: BLOOD CHOLESTEROL INCREASED
     Dates: start: 20090915
  3. METOPROLOL [Concomitant]
     Indication: HYPERTENSION
  4. LISINOPRIL [Concomitant]
     Indication: HYPERTENSION
  5. PRAVASTATIN [Concomitant]
     Indication: BLOOD CHOLESTEROL INCREASED
  6. LASIX [Concomitant]
     Indication: SWELLING

REACTIONS (6)
  - ARTHRALGIA [None]
  - DECREASED APPETITE [None]
  - HAEMORRHAGIC DIATHESIS [None]
  - INCREASED TENDENCY TO BRUISE [None]
  - LIBIDO DECREASED [None]
  - MUSCULOSKELETAL STIFFNESS [None]
